FAERS Safety Report 8649667 (Version 3)
Quarter: 2012Q4

REPORT INFORMATION
  Report Type: Report from Study
  Country: JP (occurrence: JP)
  Receive Date: 20120705
  Receipt Date: 20121114
  Transmission Date: 20130627
  Serious: Yes (Death, Hospitalization, Other)
  Sender: FDA-Public Use
  Company Number: PHHY2012JP057152

PATIENT
  Age: 60 Year
  Sex: Male
  Weight: 55 kg

DRUGS (39)
  1. ICL670A [Suspect]
     Indication: IRON OVERLOAD
     Dosage: 500 mg, daily
     Route: 048
     Dates: start: 20081009, end: 20081021
  2. ICL670A [Suspect]
     Dosage: 1000 mg, daily
     Route: 048
     Dates: start: 20081022, end: 20090224
  3. ICL670A [Suspect]
     Dosage: 500 mg, daily
     Route: 048
     Dates: start: 20090225, end: 20090324
  4. ICL670A [Suspect]
     Dosage: 1000 mg, daily
     Route: 048
     Dates: start: 20090325, end: 20090519
  5. ICL670A [Suspect]
     Dosage: 500 mg, daily
     Route: 048
     Dates: start: 20090520, end: 20100518
  6. ICL670A [Suspect]
     Dosage: 1000 mg, daily
     Route: 048
     Dates: start: 20110315, end: 20110620
  7. ICL670A [Suspect]
     Dosage: 1500 mg, daily
     Route: 048
     Dates: start: 20110621
  8. VOLTAREN - SLOW RELEASE [Concomitant]
     Dosage: 75 mg
     Route: 048
     Dates: start: 20110307, end: 20110417
  9. LASIX [Concomitant]
     Dosage: 20 mg
     Dates: start: 20081008, end: 20110722
  10. LASIX [Concomitant]
     Dosage: 20 mg
     Route: 048
  11. PREDONINE [Concomitant]
     Indication: MYELODYSPLASTIC SYNDROME
     Dosage: 30 mg
     Route: 048
     Dates: start: 20091007, end: 20110722
  12. PREDONINE [Concomitant]
     Dosage: 25 mg
     Route: 048
  13. PREDONINE [Concomitant]
     Dosage: 20 mg
     Route: 048
  14. PREDONINE [Concomitant]
     Dosage: 15 mg
     Route: 048
  15. PREDONINE [Concomitant]
     Dosage: 12.5 mg
     Route: 048
  16. PREDONINE [Concomitant]
     Dosage: 10 mg
     Route: 048
  17. PREDONINE [Concomitant]
     Dosage: 7.5 mg
     Route: 048
  18. PREDONINE [Concomitant]
     Dosage: 10 mg
     Route: 048
  19. TAKEPRON [Concomitant]
     Dosage: 30 mg
     Route: 048
     Dates: start: 20091007
  20. BAKTAR [Concomitant]
     Indication: PROPHYLAXIS
     Route: 048
     Dates: start: 20091201
  21. AZANIN [Concomitant]
     Indication: MYELODYSPLASTIC SYNDROME
     Dosage: 50 mg
     Route: 048
     Dates: start: 20101130
  22. LOXONIN [Concomitant]
     Dosage: 180 mg
     Route: 048
     Dates: start: 20110214, end: 20110306
  23. NOVAMIN [Concomitant]
     Dosage: 15 mg
     Dates: start: 20110411
  24. MAGMITT KENEI [Concomitant]
     Indication: PROPHYLAXIS
     Dosage: 1980 mg
     Dates: start: 20090411
  25. ZYLORIC [Concomitant]
     Dosage: 200 mg
     Route: 048
     Dates: start: 20110411
  26. HYDREA [Concomitant]
     Indication: MYELODYSPLASTIC SYNDROME
     Dosage: 1000 mg
     Route: 048
     Dates: start: 20110411
  27. RED BLOOD CELLS, CONCENTRATED [Concomitant]
     Dosage: 2 U, every week
     Dates: start: 20081008, end: 20081103
  28. RED BLOOD CELLS, CONCENTRATED [Concomitant]
     Dosage: 2 units every 2 weeks
     Dates: start: 20081104, end: 20090223
  29. RED BLOOD CELLS, CONCENTRATED [Concomitant]
     Dosage: 2 units every 4 weeks
     Dates: start: 20090223, end: 20090420
  30. RED BLOOD CELLS, CONCENTRATED [Concomitant]
     Dosage: 2 units every 4 weeks
     Dates: start: 20090519, end: 20091006
  31. RED BLOOD CELLS, CONCENTRATED [Concomitant]
     Dosage: 2 units every 4 weeks
     Dates: start: 20091006
  32. RED BLOOD CELLS, CONCENTRATED [Concomitant]
     Dosage: 2 units every 4 weeks
     Dates: start: 201010, end: 201011
  33. RED BLOOD CELLS, CONCENTRATED [Concomitant]
     Dosage: 8 units every 4 weeks
     Dates: start: 201010, end: 201011
  34. PLATELETS, HUMAN BLOOD [Concomitant]
     Dosage: 10 U, every 4 weeks
     Dates: start: 201103
  35. PLATELETS, HUMAN BLOOD [Concomitant]
     Dosage: 170 U, every 4 weeks
     Dates: start: 201104, end: 201105
  36. PLATELETS, HUMAN BLOOD [Concomitant]
     Dosage: 90 U, every 4 weeks
     Dates: start: 201106
  37. PLATELETS, HUMAN BLOOD [Concomitant]
     Dosage: 100 U, every 4 weeks
     Dates: start: 201106
  38. FRESH FROZEN PLASMA [Concomitant]
     Dosage: 30 U, every 4 weeks
     Dates: start: 201104
  39. FRESH FROZEN PLASMA [Concomitant]
     Dosage: 12 U, every 4 weeks
     Dates: start: 201106

REACTIONS (11)
  - Cerebral haemorrhage [Fatal]
  - Full blood count decreased [Not Recovered/Not Resolved]
  - Anaemia [Not Recovered/Not Resolved]
  - Leukocytosis [Not Recovered/Not Resolved]
  - Thrombocytopenia [Not Recovered/Not Resolved]
  - Blast cell count increased [Not Recovered/Not Resolved]
  - Blood lactate dehydrogenase increased [Not Recovered/Not Resolved]
  - Mouth ulceration [Recovered/Resolved]
  - Myelodysplastic syndrome [Not Recovered/Not Resolved]
  - Neoplasm progression [Not Recovered/Not Resolved]
  - Hepatic function abnormal [Recovered/Resolved]
